FAERS Safety Report 25131521 (Version 1)
Quarter: 2025Q1

REPORT INFORMATION
  Report Type: Spontaneous
  Country: NZ (occurrence: NZ)
  Receive Date: 20250327
  Receipt Date: 20250327
  Transmission Date: 20250409
  Serious: Yes (Other)
  Sender: PFIZER
  Company Number: NZ-KENVUE-20250305713

PATIENT
  Age: 72 Year
  Sex: Female

DRUGS (1)
  1. NICOTINE [Suspect]
     Active Substance: NICOTINE
     Route: 065

REACTIONS (5)
  - Skin cancer [Unknown]
  - Application site dermatitis [Unknown]
  - Application site erythema [Unknown]
  - Urticaria [Unknown]
  - Pruritus [Unknown]
